FAERS Safety Report 5789060-3 (Version None)
Quarter: 2008Q2

REPORT INFORMATION
  Report Type: 
  Country: None (occurrence: None)
  Receive Date: 20080626
  Receipt Date: 20080620
  Transmission Date: 20081010
  Serious: Yes (Hospitalization)
  Sender: FDA-Public Use
  Company Number: B0526657A

PATIENT
  Age: 81 Year
  Sex: Male

DRUGS (10)
  1. WELLBUTRIN [Suspect]
     Indication: DEPRESSION
     Route: 048
     Dates: start: 20080511, end: 20080528
  2. CITALOPRAM HYDROBROMIDE [Suspect]
     Indication: DRUG USE FOR UNKNOWN INDICATION
     Route: 065
  3. ACETAMINOPHEN [Concomitant]
     Route: 065
  4. LACTULOSE [Concomitant]
  5. SELEXID [Concomitant]
     Dates: start: 20080522
  6. PREDNISOLONE [Concomitant]
  7. FRAGMIN [Concomitant]
  8. SELO-ZOK [Concomitant]
  9. MONOKET OD [Concomitant]
  10. SIMVASTATIN [Concomitant]

REACTIONS (9)
  - CONVULSION [None]
  - DRUG INTERACTION [None]
  - EPILEPSY [None]
  - FALL [None]
  - FATIGUE [None]
  - LOSS OF CONSCIOUSNESS [None]
  - PARTIAL SEIZURES [None]
  - PETIT MAL EPILEPSY [None]
  - SUBARACHNOID HAEMORRHAGE [None]
